FAERS Safety Report 8385334 (Version 2)
Quarter: 2015Q1

REPORT INFORMATION
  Report Type: Report from Study
  Country: US (occurrence: US)
  Receive Date: 20120202
  Receipt Date: 20150303
  Transmission Date: 20150721
  Serious: Yes (Death)
  Sender: FDA-Public Use
  Company Number: US-ROCHE-1035714

PATIENT
  Sex: Female
  Weight: 64.01 kg

DRUGS (24)
  1. AVASTIN [Suspect]
     Active Substance: BEVACIZUMAB
     Route: 042
     Dates: start: 20060419, end: 20061002
  2. GEMZAR [Concomitant]
     Active Substance: GEMCITABINE HYDROCHLORIDE
     Route: 065
  3. ALKERAN [Concomitant]
     Active Substance: MELPHALAN
  4. TAXOTERE [Concomitant]
     Active Substance: DOCETAXEL
     Route: 065
  5. COMPAZINE [Concomitant]
     Active Substance: PROCHLORPERAZINE MALEATE
  6. ARANESP [Concomitant]
     Active Substance: DARBEPOETIN ALFA
     Route: 058
  7. CARBOPLATIN. [Concomitant]
     Active Substance: CARBOPLATIN
     Route: 065
  8. TAXOL [Concomitant]
     Active Substance: PACLITAXEL
  9. GRANISETRON [Concomitant]
     Active Substance: GRANISETRON
     Route: 065
  10. HEXALEN [Concomitant]
     Active Substance: ALTRETAMINE
  11. PEGFILGRASTIM [Concomitant]
     Active Substance: PEGFILGRASTIM
     Route: 058
  12. CIPRO [Concomitant]
     Active Substance: CIPROFLOXACIN HYDROCHLORIDE
     Route: 065
  13. NAVELBINE [Concomitant]
     Active Substance: VINORELBINE TARTRATE
     Route: 065
  14. AVASTIN [Suspect]
     Active Substance: BEVACIZUMAB
     Route: 042
     Dates: start: 20051228, end: 20060307
  15. CYTOXAN [Concomitant]
     Active Substance: CYCLOPHOSPHAMIDE
     Route: 048
  16. THIOTEPA. [Concomitant]
     Active Substance: THIOTEPA
  17. DOXIL [Concomitant]
     Active Substance: DOXORUBICIN HYDROCHLORIDE
  18. AVASTIN [Suspect]
     Active Substance: BEVACIZUMAB
     Route: 042
     Dates: start: 20051107, end: 20051212
  19. CISPLATIN. [Concomitant]
     Active Substance: CISPLATIN
  20. TOPOTECAN [Concomitant]
     Active Substance: TOPOTECAN\TOPOTECAN HYDROCHLORIDE
  21. AVASTIN [Suspect]
     Active Substance: BEVACIZUMAB
     Indication: OVARIAN CANCER
     Route: 042
     Dates: start: 20051010, end: 20051024
  22. PROCRIT [Concomitant]
     Active Substance: ERYTHROPOIETIN
     Route: 065
  23. ALOXI [Concomitant]
     Active Substance: PALONOSETRON HYDROCHLORIDE
     Route: 065
  24. DEXAMETHASONE. [Concomitant]
     Active Substance: DEXAMETHASONE
     Route: 065

REACTIONS (16)
  - Nasopharyngitis [Unknown]
  - Pyrexia [Unknown]
  - Death [Fatal]
  - Fatigue [Unknown]
  - Swelling face [Unknown]
  - Disease progression [Unknown]
  - Nasal congestion [Unknown]
  - Erythema [Unknown]
  - Pain in extremity [Unknown]
  - Vomiting [Unknown]
  - Off label use [Unknown]
  - Rash [Unknown]
  - Throat tightness [Unknown]
  - Nausea [Unknown]
  - Metastases to lymph nodes [Recovered/Resolved]
  - Dizziness [Unknown]
